FAERS Safety Report 4346791-X (Version None)
Quarter: 2004Q1

REPORT INFORMATION
  Report Type: 
  Country: None (occurrence: None)
  Receive Date: 20040329
  Receipt Date: 20040210
  Transmission Date: 20041129
  Serious: No
  Sender: FDA-Public Use
  Company Number: USA040157463

PATIENT
  Age: 13 Year
  Sex: Male

DRUGS (9)
  1. STRATTERA [Suspect]
     Indication: ATTENTION DEFICIT/HYPERACTIVITY DISORDER
     Dosage: 50 MG/DAY
     Dates: start: 20030801
  2. STRATTERA [Suspect]
     Indication: OBSESSIVE-COMPULSIVE DISORDER
     Dosage: 50 MG/DAY
     Dates: start: 20030801
  3. ALBUTEROL [Concomitant]
  4. SINGULAR (MONTELUKAST SODIUM) [Concomitant]
  5. CLARINEX [Concomitant]
  6. ADVAIR DISKUS 100/50 [Concomitant]
  7. RISPERDAL [Concomitant]
  8. LEXAPRO [Concomitant]
  9. TRILEPTAL [Concomitant]

REACTIONS (2)
  - CHEST DISCOMFORT [None]
  - DYSPNOEA [None]
